FAERS Safety Report 6933503-6 (Version None)
Quarter: 2010Q3

REPORT INFORMATION
  Report Type: 
  Country: None (occurrence: None)
  Receive Date: 20100820
  Receipt Date: 20100810
  Transmission Date: 20110219
  Serious: Yes (Life-Threatening, Hospitalization, Other)
  Sender: FDA-Public Use
  Company Number: JP-PFIZER INC-2010091617

PATIENT
  Age: 92 Year
  Sex: Male
  Weight: 50 kg

DRUGS (7)
  1. LYRICA [Suspect]
     Indication: TRIGEMINAL NEURALGIA
     Dosage: 75 MG, 2X/DAY
     Route: 048
     Dates: start: 20100622, end: 20100710
  2. AMLODIPINE [Concomitant]
     Indication: HYPERTENSION
     Dosage: 2.5 MG, 1X/DAY
     Route: 048
     Dates: start: 20041210
  3. PRAVASTATIN SODIUM [Concomitant]
     Indication: DYSLIPIDAEMIA
     Dosage: 5 MG, 1X/DAY
     Route: 048
     Dates: start: 20041210
  4. TORASEMIDE [Concomitant]
     Indication: CARDIAC FAILURE CHRONIC
     Dosage: 8 MG, 1X/DAY
     Route: 048
     Dates: start: 20100202
  5. MAGNESIUM OXIDE [Concomitant]
     Indication: CONSTIPATION
     Dosage: 330 MG, 3X/DAY
     Route: 048
     Dates: start: 20080711
  6. ALLORINE [Concomitant]
     Indication: HYPERURICAEMIA
     Dosage: 100 MG, 1X/DAY
     Route: 048
     Dates: start: 20070404
  7. FRANDOL [Concomitant]
     Indication: ANGINA PECTORIS
     Dosage: 40 MG, 1X/DAY
     Route: 062
     Dates: start: 20041210

REACTIONS (2)
  - CARDIAC FAILURE CHRONIC [None]
  - LIVER DISORDER [None]
